APPROVED DRUG PRODUCT: VINORELBINE TARTRATE
Active Ingredient: VINORELBINE TARTRATE
Strength: EQ 10MG BASE/ML
Dosage Form/Route: INJECTABLE;INJECTION
Application: A076028 | Product #001
Applicant: TEVA PHARMACEUTICALS USA
Approved: Feb 3, 2003 | RLD: No | RS: No | Type: DISCN